FAERS Safety Report 17791132 (Version 1)
Quarter: 2020Q2

REPORT INFORMATION
  Report Type: Spontaneous
  Country: US (occurrence: US)
  Receive Date: 20200514
  Receipt Date: 20200514
  Transmission Date: 20200714
  Serious: Yes (Death)
  Sender: FDA-Public Use
  Company Number: None

PATIENT
  Age: 61 Year
  Sex: Male
  Weight: 78.5 kg

DRUGS (18)
  1. ASCORBIC ACID 500MG [Concomitant]
     Dates: start: 20200513, end: 20200514
  2. ATORVASTATIN 20MG TAB [Concomitant]
     Active Substance: ATORVASTATIN
     Dates: start: 20200513, end: 20200514
  3. ZINC SULFATE 440MG DAILY [Concomitant]
     Dates: start: 20200513, end: 20200514
  4. CEFTRIAXONE 1GM IV DAILY [Concomitant]
     Dates: start: 20200509, end: 20200514
  5. DEXMEDETOMIDINE INFUSION [Concomitant]
     Dates: start: 20200513, end: 20200514
  6. INSULIN LISPRO [Concomitant]
     Active Substance: INSULIN LISPRO
     Dates: start: 20200509, end: 20200514
  7. FENTANYL 50MCG Q2H PRN [Concomitant]
     Dates: start: 20200513, end: 20200514
  8. AZITHROMYCIN 500MG IV [Concomitant]
     Active Substance: AZITHROMYCIN ANHYDROUS
     Dates: start: 20200509, end: 20200512
  9. DOXYCYCLINE 100MG IV Q12H [Concomitant]
     Dates: start: 20200513, end: 20200514
  10. ENOXAPARIN 40MG DAILY [Concomitant]
     Dates: start: 20200509, end: 20200512
  11. FUROSEMIDE 20MG ONCE [Concomitant]
     Dates: start: 20200513, end: 20200513
  12. REMDESIVIR. [Suspect]
     Active Substance: REMDESIVIR
     Indication: SARS-COV-2 TEST POSITIVE
     Route: 042
     Dates: start: 20200513, end: 20200514
  13. HYDROXYCHLOROQUINE 400MG [Concomitant]
     Dates: start: 20200513, end: 20200513
  14. IRBESARTAN 75MG DAILY [Concomitant]
     Dates: start: 20200513, end: 20200514
  15. POTASSIUM 20MEQ ONCE [Concomitant]
     Dates: start: 20200512, end: 20200512
  16. HEPARIN INFUSION [Concomitant]
     Dates: start: 20200513, end: 20200514
  17. CHOLECALCIFEROL 4,000 UNITS DAILY [Concomitant]
     Dates: start: 20200513, end: 20200514
  18. ACETAMINOPHEN 650MG Q4H PRN [Concomitant]
     Dates: start: 20200511, end: 20200514

REACTIONS (3)
  - Product use in unapproved indication [None]
  - Clinical trial participant [None]
  - Cardio-respiratory arrest [None]

NARRATIVE: CASE EVENT DATE: 20200514
